FAERS Safety Report 8437704-X (Version None)
Quarter: 2012Q2

REPORT INFORMATION
  Report Type: 
  Country: None (occurrence: None)
  Receive Date: 20120614
  Receipt Date: 20120502
  Transmission Date: 20120825
  Serious: No
  Sender: FDA-Public Use
  Company Number: US-AMGEN-USASP2012025136

PATIENT
  Age: 81 Year
  Sex: Female
  Weight: 52.608 kg

DRUGS (8)
  1. DIOVAN [Concomitant]
  2. ASPIRIN [Concomitant]
  3. VITAMIN D [Concomitant]
  4. LEVOTHYROXINE SODIUM [Concomitant]
     Dosage: 50 MUG, UNK
  5. ACTOS [Concomitant]
  6. PROLIA [Suspect]
     Indication: OSTEOPOROSIS POSTMENOPAUSAL
     Dosage: 60 MG, Q6MO
     Dates: start: 20110801, end: 20120210
  7. SIMVASTATIN [Concomitant]
  8. FISH OIL [Concomitant]

REACTIONS (4)
  - MYALGIA [None]
  - EYE INFECTION [None]
  - IRITIS [None]
  - RHINORRHOEA [None]
